FAERS Safety Report 21363670 (Version 1)
Quarter: 2022Q3

REPORT INFORMATION
  Report Type: Spontaneous
  Country: GB (occurrence: GB)
  Receive Date: 20220922
  Receipt Date: 20220922
  Transmission Date: 20221026
  Serious: Yes (Hospitalization)
  Sender: FDA-Public Use
  Company Number: None

PATIENT
  Age: 86 Year
  Sex: Male

DRUGS (2)
  1. IRON ISOMALTOSIDE 1000 [Suspect]
     Active Substance: IRON ISOMALTOSIDE 1000
     Indication: Anaemia
     Route: 050
     Dates: start: 20220912, end: 20220912
  2. ISOSORBIDE [ISOSORBIDE MONONITRATE] [Concomitant]
     Indication: Product used for unknown indication

REACTIONS (4)
  - Bradycardia [Unknown]
  - Dizziness [Unknown]
  - Blindness [Unknown]
  - Hypotension [Unknown]

NARRATIVE: CASE EVENT DATE: 20220912
